FAERS Safety Report 4532484-2 (Version None)
Quarter: 2004Q4

REPORT INFORMATION
  Report Type: 
  Country: None (occurrence: None)
  Receive Date: 20041220
  Receipt Date: 20041210
  Transmission Date: 20050328
  Serious: Yes (Death)
  Sender: FDA-Public Use
  Company Number: KR-MERCK-0412KOR00008

PATIENT
  Age: 60 Year
  Sex: Male

DRUGS (5)
  1. PRIMAXIN [Suspect]
     Indication: PNEUMONIA
     Route: 042
     Dates: start: 20041128, end: 20041203
  2. VANCOMYCIN [Concomitant]
     Indication: PNEUMONIA
     Route: 041
     Dates: start: 20041128, end: 20041203
  3. LORAZEPAM [Concomitant]
     Indication: SEDATION
     Route: 051
     Dates: start: 20041117
  4. DIGOXIN [Concomitant]
     Indication: ARRHYTHMIA
     Route: 051
     Dates: start: 20041219
  5. RIFAMPIN [Concomitant]
     Indication: PNEUMONIA
     Route: 051
     Dates: start: 20041130

REACTIONS (1)
  - SEPTIC SHOCK [None]
